FAERS Safety Report 15363902 (Version 1)
Quarter: 2018Q3

REPORT INFORMATION
  Report Type: Spontaneous
  Country: US (occurrence: US)
  Receive Date: 20180831
  Receipt Date: 20180831
  Transmission Date: 20181010
  Serious: No
  Sender: FDA-Public Use
  Company Number: None

PATIENT
  Sex: Female

DRUGS (1)
  1. ENBREL [Suspect]
     Active Substance: ETANERCEPT
     Indication: ILL-DEFINED DISORDER
     Route: 058
     Dates: start: 20180628

REACTIONS (2)
  - Incorrect dose administered [None]
  - Device malfunction [None]
